FAERS Safety Report 9695329 (Version 3)
Quarter: 2013Q4

REPORT INFORMATION
  Report Type: Report from Study
  Country: JP (occurrence: JP)
  Receive Date: 20131119
  Receipt Date: 20131213
  Transmission Date: 20140711
  Serious: Yes (Hospitalization)
  Sender: FDA-Public Use
  Company Number: JP-B.I. PHARMACEUTICALS,INC./RIDGEFIELD-2013-BI-37045BI

PATIENT
  Age: 43 Year
  Sex: Male
  Weight: 39 kg

DRUGS (19)
  1. BIBW 2992 [Suspect]
     Indication: SQUAMOUS CELL CARCINOMA OF HEAD AND NECK
     Dosage: 40 MG
     Route: 048
     Dates: start: 20130724
  2. BIBW 2992 [Suspect]
     Dosage: 30 MG
     Route: 048
     Dates: start: 20130823
  3. BIBW 2992 [Suspect]
     Route: 048
     Dates: start: 20131022, end: 20131108
  4. CISPLATIN [Concomitant]
     Indication: SQUAMOUS CELL CARCINOMA OF HEAD AND NECK
  5. CARBOPLATIN [Concomitant]
     Indication: SQUAMOUS CELL CARCINOMA OF HEAD AND NECK
  6. OXYCONTIN [Concomitant]
     Indication: HEADACHE
     Dosage: 70 MG
     Route: 048
  7. OXINORM [Concomitant]
     Indication: HEADACHE
     Dosage: 5 MG
     Route: 048
  8. LOXOPROFEN [Concomitant]
     Indication: HEADACHE
     Dosage: 180 MG
     Route: 048
     Dates: start: 20130628
  9. TAKEPRON [Concomitant]
     Indication: GASTRITIS PROPHYLAXIS
     Dosage: 15 MG
     Route: 048
     Dates: start: 20130803
  10. LYRICA [Concomitant]
     Indication: NEURALGIA
     Dosage: 25 MG
     Route: 048
     Dates: start: 20130625
  11. DEPAS [Concomitant]
     Indication: INSOMNIA
     Dosage: 0.5 MG
     Route: 048
     Dates: start: 20130625
  12. MAGMITT [Concomitant]
     Indication: CONSTIPATION
     Dosage: 990 MG
     Route: 048
     Dates: start: 20131018
  13. DIACORT [Concomitant]
     Indication: RASH
     Dosage: ROUTE: INTAKE
     Dates: start: 20131018
  14. TRYPTANOL [Concomitant]
     Indication: HEADACHE
     Dosage: 10 MG
     Route: 048
     Dates: start: 20131017, end: 20131111
  15. NEO VITACAIN [Concomitant]
     Indication: HEADACHE
     Dosage: 1 ML
     Route: 042
     Dates: start: 20131108, end: 20131108
  16. ROPION [Concomitant]
     Indication: HEADACHE
     Dosage: 50 MG
     Route: 042
     Dates: start: 20131108, end: 20131108
  17. NYROZIN [Concomitant]
     Indication: HEADACHE
     Dosage: 3 ML
     Route: 042
     Dates: start: 20131108, end: 20131108
  18. RINDERON [Concomitant]
     Indication: HEADACHE
     Dosage: 2 MG
     Route: 042
     Dates: start: 20131108, end: 20131108
  19. NEUROTROPIN [Concomitant]
     Indication: HEADACHE
     Dosage: 50 MG
     Route: 042
     Dates: start: 20131108, end: 20131108

REACTIONS (1)
  - Pneumonia [Recovered/Resolved]
